FAERS Safety Report 4375841-X (Version None)
Quarter: 2004Q2

REPORT INFORMATION
  Report Type: 
  Country: None (occurrence: None)
  Receive Date: 20040611
  Receipt Date: 20040517
  Transmission Date: 20050107
  Serious: Yes (Other)
  Sender: FDA-Public Use
  Company Number: PHFR2004GB02162

PATIENT
  Age: 62 Year
  Sex: Female
  Weight: 65 kg

DRUGS (6)
  1. LAMISIL [Suspect]
     Indication: ONYCHOMYCOSIS
     Dosage: 250 MG, QD
     Route: 048
  2. PRIADEL [Suspect]
     Dosage: 600MG/DAY
     Route: 048
     Dates: start: 20040221
  3. PRIADEL [Suspect]
     Dosage: 400MG/DAY
  4. OLANZAPINE [Concomitant]
     Indication: DEPRESSION
     Dosage: 2.5MG/DAY
     Route: 048
  5. DIAZEPAM [Concomitant]
     Indication: MOOD ALTERED
     Dosage: 5 MG, TID
     Route: 048
  6. VENLAFAXINE [Concomitant]
     Indication: DEPRESSION
     Dosage: 7.5MG 2 QD
     Route: 048

REACTIONS (1)
  - DRUG LEVEL INCREASED [None]
